FAERS Safety Report 17632603 (Version 1)
Quarter: 2020Q2

REPORT INFORMATION
  Report Type: Spontaneous
  Country: FR (occurrence: FR)
  Receive Date: 20200406
  Receipt Date: 20200406
  Transmission Date: 20200713
  Serious: Yes (Other)
  Sender: FDA-Public Use
  Company Number: FR-TEVA-2020-FR-1219953

PATIENT

DRUGS (1)
  1. ACIDE URSODESOXYCHOLIQUE [Suspect]
     Active Substance: URSODIOL
     Indication: CHOLELITHIASIS
     Route: 064

REACTIONS (1)
  - Growth retardation [Not Recovered/Not Resolved]
